FAERS Safety Report 20471274 (Version 1)
Quarter: 2022Q1

REPORT INFORMATION
  Report Type: Spontaneous
  Country: US (occurrence: US)
  Receive Date: 20220214
  Receipt Date: 20220214
  Transmission Date: 20220424
  Serious: No
  Sender: FDA-Public Use
  Company Number: US-TG THERAPEUTICS INC.-TGT002385

PATIENT
  Age: 47 Year
  Sex: Male
  Weight: 76.644 kg

DRUGS (2)
  1. UKONIQ [Suspect]
     Active Substance: UMBRALISIB TOSYLATE
     Indication: B-cell lymphoma
     Dosage: 800 MILLIGRAM, QD
     Route: 048
     Dates: start: 20220105
  2. ACYCLOVIR [Concomitant]
     Active Substance: ACYCLOVIR
     Indication: Prophylaxis
     Dosage: 800 MILLIGRAM, QD
     Route: 048

REACTIONS (4)
  - Cough [Not Recovered/Not Resolved]
  - Nasal congestion [Not Recovered/Not Resolved]
  - Ear pain [Not Recovered/Not Resolved]
  - Pyrexia [Not Recovered/Not Resolved]

NARRATIVE: CASE EVENT DATE: 20220119
